FAERS Safety Report 21550212 (Version 1)
Quarter: 2022Q4

REPORT INFORMATION
  Report Type: Spontaneous
  Country: AT (occurrence: AT)
  Receive Date: 20221103
  Receipt Date: 20221103
  Transmission Date: 20230113
  Serious: Yes (Other)
  Sender: FDA-Public Use
  Company Number: AT-SLATE RUN PHARMACEUTICALS-22AT001406

PATIENT

DRUGS (1)
  1. VORICONAZOLE [Suspect]
     Active Substance: VORICONAZOLE
     Indication: Aspergillus test positive
     Dosage: UNK

REACTIONS (2)
  - Cerebral aspergillosis [Recovered/Resolved]
  - Periventricular leukomalacia [Recovered/Resolved]
